FAERS Safety Report 19019967 (Version 1)
Quarter: 2021Q1

REPORT INFORMATION
  Report Type: Spontaneous
  Country: FR (occurrence: FR)
  Receive Date: 20210317
  Receipt Date: 20210317
  Transmission Date: 20210420
  Serious: Yes (Other)
  Sender: FDA-Public Use
  Company Number: FR-AMNEAL PHARMACEUTICALS-2021-AMRX-00858

PATIENT
  Age: 37 Year
  Sex: Female

DRUGS (2)
  1. AZATHIOPRINE. [Suspect]
     Active Substance: AZATHIOPRINE
     Indication: CROHN^S DISEASE
     Dosage: 200 MILLIGRAM, DAILY (STOPPED AT 28 WG OF 2ND PREGNANCY)
     Route: 065
     Dates: end: 2013
  2. AZATHIOPRINE. [Suspect]
     Active Substance: AZATHIOPRINE
     Dosage: 200 MILLIGRAM, DAILY (STOPPED AT 21 WG OF 3RD PREGNANCY)
     Route: 065
     Dates: end: 2014

REACTIONS (4)
  - Maternal exposure during pregnancy [Unknown]
  - Premature delivery [Unknown]
  - Cholestasis of pregnancy [Recovered/Resolved]
  - Preterm premature rupture of membranes [Unknown]

NARRATIVE: CASE EVENT DATE: 2010
